FAERS Safety Report 12775238 (Version 1)
Quarter: 2016Q3

REPORT INFORMATION
  Report Type: Spontaneous
  Country: US (occurrence: US)
  Receive Date: 20160922
  Receipt Date: 20160922
  Transmission Date: 20161109
  Serious: Yes (Other)
  Sender: FDA-Public Use
  Company Number: None

PATIENT
  Age: 55 Year
  Sex: Female
  Weight: 90 kg

DRUGS (2)
  1. GAMMAPLEX [Suspect]
     Active Substance: HUMAN IMMUNOGLOBULIN G
     Indication: IMMUNODEFICIENCY COMMON VARIABLE
     Dosage: OTHER STRENGTH:;OTHER DOSE:;OTHER FREQUENCY:MONTHLY;OTHER ROUTE:
     Route: 041
  2. GAMMAPLEX [Suspect]
     Active Substance: HUMAN IMMUNOGLOBULIN G
     Indication: IMMUNODEFICIENCY COMMON VARIABLE
     Dosage: OTHER STRENGTH:;OTHER DOSE:;OTHER FREQUENCY:MONTHLY;OTHER ROUTE:
     Route: 041

REACTIONS (2)
  - Chills [None]
  - Myalgia [None]

NARRATIVE: CASE EVENT DATE: 20160922
